FAERS Safety Report 7245420-5 (Version None)
Quarter: 2011Q1

REPORT INFORMATION
  Report Type: 
  Country: None (occurrence: None)
  Receive Date: 20110126
  Receipt Date: 20110119
  Transmission Date: 20110831
  Serious: Yes (Other)
  Sender: FDA-Public Use
  Company Number: KR-GENZYME-FLUD-1000650

PATIENT

DRUGS (2)
  1. BUSULFAN [Suspect]
     Indication: STEM CELL TRANSPLANT
     Dosage: UNK
     Route: 065
  2. FLUDARA [Suspect]
     Indication: STEM CELL TRANSPLANT
     Dosage: UNK
     Route: 065

REACTIONS (1)
  - ACUTE GRAFT VERSUS HOST DISEASE [None]
